FAERS Safety Report 10042142 (Version 1)
Quarter: 2014Q1

REPORT INFORMATION
  Report Type: Spontaneous
  Country: US (occurrence: US)
  Receive Date: 20140327
  Receipt Date: 20140327
  Transmission Date: 20141002
  Serious: Yes (Other)
  Sender: FDA-Public Use
  Company Number: US-JNJFOC-20140313031

PATIENT
  Sex: 0

DRUGS (1)
  1. IBUPROFEN [Suspect]
     Indication: PROCEDURAL PAIN
     Dosage: DOSES OF 600.0 (UNIT UNSPECIFIED) AND 2.0, WITHIN 24 HOURS TO 48 HOURS OF ADMISSION AND OPERATION
     Route: 065

REACTIONS (2)
  - Fracture nonunion [Unknown]
  - Infection [Unknown]
